FAERS Safety Report 7685254-0 (Version None)
Quarter: 2011Q3

REPORT INFORMATION
  Report Type: 
  Country: None (occurrence: None)
  Receive Date: 20110816
  Receipt Date: 20110809
  Transmission Date: 20111222
  Serious: Yes (Other)
  Sender: FDA-Public Use
  Company Number: CO-ELI_LILLY_AND_COMPANY-CO201107006133

PATIENT
  Age: 57 Year
  Sex: Male

DRUGS (8)
  1. BYETTA [Suspect]
     Dosage: 5 UG, BID
     Route: 058
     Dates: start: 20110621, end: 20110702
  2. ASPIRIN [Concomitant]
  3. ALLOPURINOL [Concomitant]
  4. JANUMET [Concomitant]
  5. METFORMIN HCL [Concomitant]
  6. BYETTA [Suspect]
     Indication: TYPE 2 DIABETES MELLITUS
     Dosage: UNK
     Dates: start: 20080101
  7. HIPERLIPEN [Concomitant]
  8. CAPTOPRIL [Concomitant]

REACTIONS (4)
  - PRURITUS [None]
  - DYSPNOEA [None]
  - PHARYNGEAL OEDEMA [None]
  - RASH [None]
